FAERS Safety Report 5114489-6 (Version None)
Quarter: 2006Q3

REPORT INFORMATION
  Report Type: 
  Country: None (occurrence: None)
  Receive Date: 20060801
  Receipt Date: 20060601
  Transmission Date: 20061208
  Serious: Yes (Other)
  Sender: FDA-Public Use
  Company Number: 450489

PATIENT
  Sex: Female

DRUGS (1)
  1. BONIVA [Suspect]
     Indication: DRUG USE FOR UNKNOWN INDICATION
     Dosage: 3 MG INTRAVENOUS
     Route: 042
     Dates: start: 20060522

REACTIONS (4)
  - CHILLS [None]
  - FEELING COLD [None]
  - FEELING HOT [None]
  - NAUSEA [None]
